FAERS Safety Report 5893519-8 (Version None)
Quarter: 2008Q3

REPORT INFORMATION
  Report Type: 
  Country: None (occurrence: None)
  Receive Date: 20080919
  Receipt Date: 20080911
  Transmission Date: 20090109
  Serious: Yes (Other)
  Sender: FDA-Public Use
  Company Number: TCI2008A04379

PATIENT
  Age: 73 Year
  Sex: Male

DRUGS (1)
  1. LANSAP 800 (LANSOPRAZOLE, CLARITHROMYCIN, AMOXICILLIN) (PREPARATTION F [Suspect]
     Indication: HELICOBACTER INFECTION
     Dosage: 1 CARD (0.5 CARD, 2 IN 1 D) PER ORAL
     Route: 048
     Dates: start: 20030326, end: 20030402

REACTIONS (5)
  - ANAPLASTIC LARGE CELL LYMPHOMA T- AND NULL-CELL TYPES [None]
  - BACK PAIN [None]
  - CONDITION AGGRAVATED [None]
  - HELICOBACTER PYLORI IDENTIFICATION TEST POSITIVE [None]
  - INTERSTITIAL LUNG DISEASE [None]
